FAERS Safety Report 13380893 (Version 1)
Quarter: 2017Q1

REPORT INFORMATION
  Report Type: Spontaneous
  Country: US (occurrence: US)
  Receive Date: 20170329
  Receipt Date: 20170329
  Transmission Date: 20170429
  Serious: No
  Sender: FDA-Public Use
  Company Number: US-ASTRAZENECA-2017SE30665

PATIENT
  Sex: Female
  Weight: 136.1 kg

DRUGS (1)
  1. FASLODEX [Suspect]
     Active Substance: FULVESTRANT
     Indication: BREAST CANCER
     Route: 030
     Dates: start: 201612

REACTIONS (3)
  - Injection site extravasation [Unknown]
  - Drug administration error [Unknown]
  - Injection site nodule [Unknown]
